FAERS Safety Report 18003518 (Version 2)
Quarter: 2020Q3

REPORT INFORMATION
  Report Type: Spontaneous
  Country: US (occurrence: US)
  Receive Date: 20200709
  Receipt Date: 20200709
  Transmission Date: 20201103
  Serious: No
  Sender: FDA-Public Use
  Company Number: US-ASTELLAS-2020US003788

PATIENT
  Age: 88 Year
  Sex: Male

DRUGS (2)
  1. MYRBETRIQ [Suspect]
     Active Substance: MIRABEGRON
     Indication: PRODUCT USED FOR UNKNOWN INDICATION
     Dosage: 50 MG, ONCE DAILY AT BEDTIME
     Route: 065
     Dates: start: 2019
  2. MYRBETRIQ [Suspect]
     Active Substance: MIRABEGRON
     Indication: PRODUCT USED FOR UNKNOWN INDICATION
     Dosage: 25 MG, ONCE DAILY AT BEDTIME
     Route: 065
     Dates: start: 2019

REACTIONS (5)
  - Drug ineffective [Unknown]
  - Nocturia [Unknown]
  - Pollakiuria [Unknown]
  - Urine flow decreased [Unknown]
  - Memory impairment [Unknown]
